FAERS Safety Report 11239575 (Version 2)
Quarter: 2015Q3

REPORT INFORMATION
  Report Type: Spontaneous
  Country: US (occurrence: US)
  Receive Date: 20150706
  Receipt Date: 20150811
  Transmission Date: 20151125
  Serious: Yes (Hospitalization, Other)
  Sender: FDA-Public Use
  Company Number: US-PFIZER INC-2015217726

PATIENT
  Age: 52 Year
  Sex: Female
  Weight: 66 kg

DRUGS (1)
  1. ADVIL [Suspect]
     Active Substance: IBUPROFEN
     Indication: BACK PAIN
     Dosage: 5 DF, DAILY (THREE PILLS IN THE MORNING AND TWO PILLS AT NIGHT)
     Dates: end: 201506

REACTIONS (2)
  - Product use issue [Recovered/Resolved]
  - Myocardial infarction [Recovered/Resolved]

NARRATIVE: CASE EVENT DATE: 201506
